FAERS Safety Report 7541939-8 (Version None)
Quarter: 2011Q2

REPORT INFORMATION
  Report Type: 
  Country: None (occurrence: None)
  Receive Date: 20110524
  Receipt Date: 20110324
  Transmission Date: 20111010
  Serious: No
  Sender: FDA-Public Use
  Company Number: 030007

PATIENT
  Sex: Male

DRUGS (3)
  1. CIMZIA [Suspect]
     Indication: CROHN'S DISEASE
     Dosage: (SUBCUTANEOUS), (SUBCUTANEOUS), (SUBCUTANEOUS)
     Route: 058
     Dates: start: 20110207, end: 20110221
  2. CIMZIA [Suspect]
     Indication: CROHN'S DISEASE
     Dosage: (SUBCUTANEOUS), (SUBCUTANEOUS), (SUBCUTANEOUS)
     Route: 058
     Dates: start: 20110301
  3. CIMZIA [Suspect]
     Indication: CROHN'S DISEASE
     Dosage: (SUBCUTANEOUS), (SUBCUTANEOUS), (SUBCUTANEOUS)
     Route: 058
     Dates: start: 20110315

REACTIONS (2)
  - INCORRECT DRUG ADMINISTRATION DURATION [None]
  - CROHN'S DISEASE [None]
